FAERS Safety Report 24461432 (Version 1)
Quarter: 2024Q4

REPORT INFORMATION
  Report Type: Report from Study
  Country: US (occurrence: US)
  Receive Date: 20241018
  Receipt Date: 20241018
  Transmission Date: 20250114
  Serious: No
  Sender: ROCHE
  Company Number: US-ROCHE-3564483

PATIENT
  Age: 53 Year
  Sex: Female

DRUGS (22)
  1. RITUXAN [Suspect]
     Active Substance: RITUXIMAB
     Indication: Urticaria
     Dosage: 10 MG/ML
     Route: 058
  2. XOLAIR [Suspect]
     Active Substance: OMALIZUMAB
     Indication: Urticaria
     Route: 058
  3. XOLAIR [Suspect]
     Active Substance: OMALIZUMAB
     Route: 058
  4. CYCLOSPORINE [Concomitant]
     Active Substance: CYCLOSPORINE
  5. IMURAN [Concomitant]
     Active Substance: AZATHIOPRINE
  6. METHOTREXATE [Concomitant]
     Active Substance: METHOTREXATE
  7. TYLENOL [Concomitant]
     Active Substance: ACETAMINOPHEN
     Route: 048
  8. FLEXERIL [Concomitant]
     Active Substance: CYCLOBENZAPRINE HYDROCHLORIDE
     Route: 048
  9. BENADRYL ALLERGY [Concomitant]
     Active Substance: DIPHENHYDRAMINE HYDROCHLORIDE
     Route: 048
  10. PROZAC [Concomitant]
     Active Substance: FLUOXETINE HYDROCHLORIDE
     Route: 048
  11. NEURONTIN [Concomitant]
     Active Substance: GABAPENTIN
     Route: 048
  12. NORCO [Concomitant]
     Active Substance: ACETAMINOPHEN\HYDROCODONE BITARTRATE
     Route: 048
  13. ATARAX [Concomitant]
     Active Substance: HYDROXYZINE HYDROCHLORIDE
     Route: 048
  14. ATIVAN [Concomitant]
     Active Substance: LORAZEPAM
     Route: 048
  15. MOBIC [Concomitant]
     Active Substance: MELOXICAM
     Route: 048
  16. ZOFRAN [Concomitant]
     Active Substance: ONDANSETRON HYDROCHLORIDE
     Route: 048
     Dates: start: 20240509
  17. PREDNISONE [Concomitant]
     Active Substance: PREDNISONE
     Dosage: 1.5 TAB FOR 14 DAY AND THEN 1 TAB FOR 14 DAYS AFTER BREAKFAST
     Route: 048
  18. PREDNISONE [Concomitant]
     Active Substance: PREDNISONE
     Dosage: 2 TAB FOR 7 DAYS THEN 2.5 TAB FOR 7 DAYS, THEN 2 TAB FOR 14 DAYS, 1.5 TAB FOR 14 DAYS, THEN 1 TAB FO
     Route: 048
  19. ZANAFLEX [Concomitant]
     Active Substance: TIZANIDINE HYDROCHLORIDE
     Route: 048
  20. DESYREL [Concomitant]
     Active Substance: TRAZODONE HYDROCHLORIDE
     Route: 048
  21. DIOVAN HCT [Concomitant]
     Active Substance: HYDROCHLOROTHIAZIDE\VALSARTAN
     Route: 048
  22. COLCRYS [Concomitant]
     Active Substance: COLCHICINE
     Route: 048

REACTIONS (9)
  - Liver function test increased [Unknown]
  - Tremor [Unknown]
  - Nausea [Unknown]
  - Vomiting [Unknown]
  - Fatigue [Unknown]
  - Headache [Unknown]
  - Nasal congestion [Unknown]
  - Sneezing [Unknown]
  - Off label use [Unknown]
